FAERS Safety Report 8010309-0 (Version None)
Quarter: 2011Q4

REPORT INFORMATION
  Report Type: 
  Country: None (occurrence: None)
  Receive Date: 20111228
  Receipt Date: 20111226
  Transmission Date: 20120403
  Serious: Yes (Death, Hospitalization, Other)
  Sender: FDA-Public Use
  Company Number: JP-BAYER-200812147BYL

PATIENT
  Age: 81 Year
  Sex: Male
  Weight: 57 kg

DRUGS (2)
  1. SORAFENIB [Suspect]
     Dosage: 200 MG (DAILY DOSE), , ORAL
     Route: 048
     Dates: start: 20080613, end: 20080723
  2. SORAFENIB [Suspect]
     Indication: RENAL CELL CARCINOMA
     Dosage: 400 MG (DAILY DOSE), , ORAL
     Route: 048
     Dates: start: 20080530, end: 20080612

REACTIONS (8)
  - DYSPHONIA [None]
  - ALANINE AMINOTRANSFERASE INCREASED [None]
  - RENAL CELL CARCINOMA [None]
  - DEAFNESS [None]
  - PALMAR-PLANTAR ERYTHRODYSAESTHESIA SYNDROME [None]
  - MOUTH HAEMORRHAGE [None]
  - PNEUMOTHORAX [None]
  - DECREASED APPETITE [None]
